FAERS Safety Report 7264770-X (Version None)
Quarter: 2011Q1

REPORT INFORMATION
  Report Type: 
  Country: None (occurrence: None)
  Receive Date: 20110131
  Receipt Date: 20110124
  Transmission Date: 20110831
  Serious: Yes (Death)
  Sender: FDA-Public Use
  Company Number: US-PFIZER INC-2011018627

PATIENT
  Sex: Male

DRUGS (2)
  1. CAMPTOSAR [Suspect]
     Indication: LUNG NEOPLASM MALIGNANT
     Dosage: 5 MG, 10 VIALS
  2. CAMPTOSAR [Suspect]
     Indication: METASTASES TO KIDNEY

REACTIONS (1)
  - DEATH [None]
